FAERS Safety Report 5748782-0 (Version None)
Quarter: 2008Q2

REPORT INFORMATION
  Report Type: 
  Country: None (occurrence: None)
  Receive Date: 20080521
  Receipt Date: 20080506
  Transmission Date: 20081010
  Serious: Yes (Hospitalization)
  Sender: FDA-Public Use
  Company Number: 230144J08BRA

PATIENT
  Sex: Female

DRUGS (1)
  1. REBIF [Suspect]
     Dosage: 44 MCG, 3 IN 1 WEEKS
     Dates: start: 20070629

REACTIONS (4)
  - CONVULSION [None]
  - DIZZINESS [None]
  - HEADACHE [None]
  - HEMIPLEGIA [None]
